FAERS Safety Report 5331386-1 (Version None)
Quarter: 2007Q2

REPORT INFORMATION
  Report Type: 
  Country: None (occurrence: None)
  Receive Date: 20070522
  Receipt Date: 20070514
  Transmission Date: 20071010
  Serious: Yes (Hospitalization)
  Sender: FDA-Public Use
  Company Number: FR-SANOFI-SYNTHELABO-A02200701394

PATIENT
  Sex: Female
  Weight: 40 kg

DRUGS (14)
  1. TRIATEC [Concomitant]
     Indication: DRUG USE FOR UNKNOWN INDICATION
     Route: 048
  2. PLAVIX [Suspect]
     Indication: CORONARY ANGIOPLASTY
     Route: 048
     Dates: start: 20060711, end: 20070321
  3. PLAVIX [Suspect]
     Indication: CORONARY ARTERIAL STENT INSERTION
     Route: 048
     Dates: start: 20060711, end: 20070321
  4. KARDEGIC [Suspect]
     Indication: CORONARY ANGIOPLASTY
     Dosage: UNK
     Route: 048
     Dates: end: 20060711
  5. KARDEGIC [Suspect]
     Indication: CORONARY ARTERIAL STENT INSERTION
     Dosage: UNK
     Route: 048
     Dates: end: 20060711
  6. FLIXOTIDE DISKUS [Concomitant]
     Indication: DRUG USE FOR UNKNOWN INDICATION
     Route: 048
  7. SEREVENT [Concomitant]
     Indication: DRUG USE FOR UNKNOWN INDICATION
     Dosage: UNK
     Route: 048
  8. MOVICOL [Concomitant]
     Indication: DRUG USE FOR UNKNOWN INDICATION
     Dosage: UNK
     Route: 048
  9. GAVISCON [Concomitant]
     Indication: DRUG USE FOR UNKNOWN INDICATION
     Route: 048
  10. DOLIPRANE [Concomitant]
     Indication: DRUG USE FOR UNKNOWN INDICATION
     Dosage: UNK
     Route: 065
  11. STILNOX [Concomitant]
     Indication: DRUG USE FOR UNKNOWN INDICATION
     Route: 048
  12. NICORANDIL [Concomitant]
     Route: 048
  13. NEXIUM [Concomitant]
     Route: 048
  14. OXEOL [Concomitant]
     Route: 048

REACTIONS (2)
  - ANAEMIA [None]
  - OESOPHAGITIS [None]
